FAERS Safety Report 4531776-0 (Version None)
Quarter: 2004Q4

REPORT INFORMATION
  Report Type: 
  Country: None (occurrence: None)
  Receive Date: 20041220
  Receipt Date: 20041207
  Transmission Date: 20050328
  Serious: Yes (Death, Life-Threatening)
  Sender: FDA-Public Use
  Company Number: JP-JNJFOC-20041201676

PATIENT
  Age: 81 Year
  Sex: Female
  Weight: 55 kg

DRUGS (27)
  1. OFLOCET [Suspect]
     Indication: INFECTION
     Route: 049
     Dates: start: 20030211, end: 20030218
  2. AUGMENTIN '125' [Suspect]
     Route: 049
  3. AUGMENTIN '125' [Suspect]
     Indication: DRUG USE FOR UNKNOWN INDICATION
     Route: 049
  4. LOVENOX [Interacting]
     Indication: ARRHYTHMIA
     Route: 058
  5. PREVISCAN [Suspect]
     Indication: DRUG USE FOR UNKNOWN INDICATION
     Route: 049
  6. KARDEGIC [Suspect]
     Indication: DRUG USE FOR UNKNOWN INDICATION
     Route: 049
  7. COVERSYL [Concomitant]
     Route: 065
  8. NITROGLYCERIN [Concomitant]
     Route: 065
  9. CORDARONE [Concomitant]
     Route: 065
  10. TARDYFERON [Concomitant]
     Route: 065
  11. ADANCOR [Concomitant]
     Route: 065
  12. MODOPAR [Concomitant]
     Route: 065
  13. MODOPAR [Concomitant]
     Route: 065
  14. GAVISCON [Concomitant]
     Route: 065
  15. GAVISCON [Concomitant]
     Route: 065
  16. STILNOX [Concomitant]
     Route: 065
  17. ACETAMINOPHEN [Concomitant]
     Route: 065
  18. OMEPRAZOLE [Concomitant]
     Route: 065
  19. VOLTAREN [Concomitant]
     Route: 065
  20. SERC [Concomitant]
     Route: 065
  21. CYCLO 3 [Concomitant]
     Route: 065
  22. CYCLO 3 [Concomitant]
     Route: 065
  23. CYCLO 3 [Concomitant]
     Route: 065
  24. TANAKAN [Concomitant]
     Route: 065
  25. TRANSILANE [Concomitant]
     Route: 065
  26. TRANSILANE [Concomitant]
     Route: 065
  27. DIGOXIN [Concomitant]
     Route: 065
     Dates: start: 20030209

REACTIONS (5)
  - DRUG INTERACTION [None]
  - EMBOLISM [None]
  - MULTI-ORGAN FAILURE [None]
  - RETROPERITONEAL HAEMORRHAGE [None]
  - SHOCK HAEMORRHAGIC [None]
